FAERS Safety Report 5644094-4 (Version None)
Quarter: 2008Q1

REPORT INFORMATION
  Report Type: 
  Country: None (occurrence: None)
  Receive Date: 20080226
  Receipt Date: 20080215
  Transmission Date: 20080703
  Serious: Yes (Hospitalization)
  Sender: FDA-Public Use
  Company Number: B0508699A

PATIENT
  Age: 10 Year
  Sex: Male
  Weight: 30.9353 kg

DRUGS (2)
  1. RELENZA [Suspect]
     Indication: INFLUENZA
     Dosage: 10 MG/TWICE PER DAY/INHALED
     Route: 055
     Dates: start: 20080208, end: 20080208
  2. ACETAMINOPHEN [Concomitant]

REACTIONS (2)
  - DEPRESSED LEVEL OF CONSCIOUSNESS [None]
  - HALLUCINATION [None]
